FAERS Safety Report 17399506 (Version 1)
Quarter: 2020Q1

REPORT INFORMATION
  Report Type: Spontaneous
  Country: US (occurrence: US)
  Receive Date: 20200211
  Receipt Date: 20200211
  Transmission Date: 20200409
  Serious: Yes (Other)
  Sender: FDA-Public Use
  Company Number: US-BRISTOL-MYERS SQUIBB COMPANY-BMS-2020-009968

PATIENT
  Age: 49 Year
  Sex: Male
  Weight: 86 kg

DRUGS (3)
  1. YERVOY [Suspect]
     Active Substance: IPILIMUMAB
     Indication: APPENDIX CANCER
     Dosage: 1 MILLIGRAM/KILOGRAM, Q4WK
     Route: 042
     Dates: start: 202001
  2. OPDIVO [Suspect]
     Active Substance: NIVOLUMAB
     Indication: APPENDIX CANCER
     Dosage: 240 MILLIGRAM, Q2WK
     Route: 042
  3. AVASTIN [Concomitant]
     Active Substance: BEVACIZUMAB
     Indication: PRODUCT USED FOR UNKNOWN INDICATION
     Dosage: UNK
     Route: 065

REACTIONS (2)
  - Intentional product use issue [Unknown]
  - Colitis [Unknown]

NARRATIVE: CASE EVENT DATE: 202001
